FAERS Safety Report 15820146 (Version 2)
Quarter: 2019Q1

REPORT INFORMATION
  Report Type: Report from Study
  Country: AR (occurrence: AR)
  Receive Date: 20190114
  Receipt Date: 20190131
  Transmission Date: 20190417
  Serious: Yes (Hospitalization)
  Sender: FDA-Public Use
  Company Number: PHHY2019AR004787

PATIENT
  Age: 78 Year
  Sex: Male

DRUGS (3)
  1. ENTRESTO [Suspect]
     Active Substance: SACUBITRIL\VALSARTAN
     Indication: CARDIAC FAILURE
     Dosage: 100 MG, QD
     Route: 065
  2. ENTRESTO [Suspect]
     Active Substance: SACUBITRIL\VALSARTAN
     Dosage: 50 MG, QD
     Route: 065
  3. ENTRESTO [Suspect]
     Active Substance: SACUBITRIL\VALSARTAN
     Dosage: 50 MG, Q12H
     Route: 065
     Dates: start: 201810

REACTIONS (8)
  - Malaise [Recovering/Resolving]
  - Rash [Recovered/Resolved]
  - Device related infection [Unknown]
  - Syncope [Recovered/Resolved]
  - Inappropriate schedule of product administration [Unknown]
  - Varicose vein [Recovered/Resolved]
  - Petechiae [Recovered/Resolved]
  - Underdose [Unknown]

NARRATIVE: CASE EVENT DATE: 20180918
